FAERS Safety Report 9144046 (Version 1)
Quarter: 2013Q1

REPORT INFORMATION
  Report Type: Report from Study
  Country: AU (occurrence: AU)
  Receive Date: 20130306
  Receipt Date: 20130306
  Transmission Date: 20140127
  Serious: Yes (Other)
  Sender: FDA-Public Use
  Company Number: AU-ROCHE-1189217

PATIENT
  Sex: Female

DRUGS (15)
  1. ACTEMRA [Suspect]
     Indication: RHEUMATOID ARTHRITIS
     Route: 042
     Dates: start: 20120416
  2. ACTEMRA [Suspect]
     Route: 042
  3. AMIODARONE [Concomitant]
     Indication: HEART RATE IRREGULAR
     Route: 048
  4. FOLIC ACID [Concomitant]
     Route: 048
  5. NEO B12 [Concomitant]
     Dosage: 1 MG/ML
     Route: 065
  6. OVESTIN [Concomitant]
     Route: 067
  7. OXYBUTYNIN HYDROCHLORIDE [Concomitant]
     Route: 048
  8. PREDNISOLONE [Concomitant]
     Route: 048
  9. PANADOL [Concomitant]
     Route: 048
  10. PANADOL [Concomitant]
     Route: 048
  11. SPIRIVA [Concomitant]
     Route: 065
  12. VENTOLIN [Concomitant]
     Route: 065
  13. ONBREZ BREEZHALER [Concomitant]
     Route: 065
  14. OXYGEN [Concomitant]
     Dosage: 2L/MIN
     Route: 065
  15. OXYGEN [Concomitant]
     Route: 065

REACTIONS (2)
  - Lower respiratory tract infection [Recovering/Resolving]
  - Increased upper airway secretion [Not Recovered/Not Resolved]
